FAERS Safety Report 13961944 (Version 2)
Quarter: 2018Q1

REPORT INFORMATION
  Report Type: Spontaneous
  Country: NL (occurrence: NL)
  Receive Date: 20170912
  Receipt Date: 20180314
  Transmission Date: 20180508
  Serious: Yes (Other)
  Sender: FDA-Public Use
  Company Number: NL-TOLMAR, INC.-2017NL012051

PATIENT
  Age: 68 Year
  Sex: Male

DRUGS (5)
  1. ELIGARD [Suspect]
     Active Substance: LEUPROLIDE ACETATE
     Dosage: 45 MG, 1X PER 6 MONTHS
     Route: 058
     Dates: start: 20170306
  2. ELIGARD [Suspect]
     Active Substance: LEUPROLIDE ACETATE
     Dosage: 45 MG, 1X PER 6 MONTHS
     Route: 058
     Dates: start: 20180305
  3. BICALUTAMIDE. [Concomitant]
     Active Substance: BICALUTAMIDE
     Dosage: UNK
     Dates: end: 201705
  4. ELIGARD [Suspect]
     Active Substance: LEUPROLIDE ACETATE
     Dosage: 45 MG, 1X PER 6 MONTHS
     Route: 058
     Dates: start: 20170904
  5. ELIGARD [Suspect]
     Active Substance: LEUPROLIDE ACETATE
     Indication: PROSTATE CANCER
     Dosage: 45 MG,1X PER 6 MONTHS
     Route: 058
     Dates: start: 20150910

REACTIONS (1)
  - Prostatic specific antigen increased [Unknown]

NARRATIVE: CASE EVENT DATE: 20170618
